FAERS Safety Report 12572967 (Version 1)
Quarter: 2016Q3

REPORT INFORMATION
  Report Type: Report from Study
  Country: JP (occurrence: JP)
  Receive Date: 20160720
  Receipt Date: 20160720
  Transmission Date: 20161109
  Serious: Yes (Hospitalization, Disabling)
  Sender: FDA-Public Use
  Company Number: JP-TAKEDA-2016TJP014480

PATIENT
  Age: 64 Year
  Sex: Female
  Weight: 46.9 kg

DRUGS (27)
  1. SOLACET F [Concomitant]
     Indication: URINARY TRACT INFECTION
     Dosage: 500 ML, UNK
     Dates: start: 20151112, end: 20151113
  2. ANTINEOPLASTIC AGENTS [Suspect]
     Active Substance: UNSPECIFIED INGREDIENT
     Indication: ACUTE MYELOID LEUKAEMIA
     Dosage: UNK
     Route: 058
     Dates: start: 20150812, end: 20151216
  3. FEBURIC [Concomitant]
     Active Substance: FEBUXOSTAT
     Indication: HYPERURICAEMIA
     Dosage: UNK
     Dates: start: 20150924
  4. BETANIS [Concomitant]
     Active Substance: MIRABEGRON
     Indication: CYSTITIS
     Dosage: UNK
     Dates: start: 20150930
  5. DOPS [Concomitant]
     Active Substance: DROXIDOPA
     Dosage: 200 MG, UNK
     Dates: start: 20151014, end: 20151108
  6. CALONAL [Concomitant]
     Active Substance: ACETAMINOPHEN
     Indication: HERPES ZOSTER
     Dosage: UNK
     Dates: start: 20151109
  7. DOGMATYL [Concomitant]
     Active Substance: SULPIRIDE
     Indication: DEPRESSION
     Dosage: UNK
     Dates: start: 20151217
  8. PROCHLORPERAZINE MALEATE. [Concomitant]
     Active Substance: PROCHLORPERAZINE MALEATE
     Indication: VOMITING
     Dosage: UNK
     Dates: start: 20151210
  9. ALPRAZOLAM. [Concomitant]
     Active Substance: ALPRAZOLAM
     Indication: ANXIETY
     Dosage: UNK
     Dates: start: 20151214
  10. HEPARINOID [Concomitant]
     Active Substance: CHONDROITIN SULFATE (BOVINE)
     Indication: DRY SKIN PROPHYLAXIS
     Dosage: UNK
     Dates: start: 20150625
  11. MAGLAX [Concomitant]
     Active Substance: MAGNESIUM OXIDE
     Indication: CONSTIPATION PROPHYLAXIS
     Dosage: UNK
     Dates: start: 20051110
  12. TETRAMIDE [Concomitant]
     Active Substance: MIANSERIN
     Indication: INSOMNIA
     Dosage: UNK
     Dates: start: 20151217
  13. BUSCOPAN [Concomitant]
     Active Substance: BUTYLSCOPOLAMINE BROMIDE
     Indication: DIABETIC AUTONOMIC NEUROPATHY
     Dosage: UNK
     Dates: start: 20150803
  14. PANSPORIN T [Concomitant]
     Indication: CYSTITIS
     Dosage: UNK
     Dates: start: 20150909
  15. PRIMPERAN [Concomitant]
     Active Substance: METOCLOPRAMIDE HYDROCHLORIDE
     Indication: PROPHYLAXIS OF NAUSEA AND VOMITING
     Dosage: UNK
     Dates: start: 20150826
  16. SENNOSIDE A+B [Concomitant]
     Active Substance: SENNOSIDES A AND B
     Indication: CONSTIPATION PROPHYLAXIS
     Dosage: UNK
     Dates: start: 20151110
  17. UNASYN S [Concomitant]
     Active Substance: AMPICILLIN SODIUM\SULBACTAM SODIUM
     Indication: URINARY TRACT INFECTION
     Dosage: 1.5 G, UNK
     Dates: start: 20151112, end: 20151118
  18. ALOGLIPTIN. [Suspect]
     Active Substance: ALOGLIPTIN
     Indication: DIABETES MELLITUS
     Dosage: 25 MG, QD
     Route: 048
  19. ALOGLIPTIN. [Suspect]
     Active Substance: ALOGLIPTIN
     Dosage: 12.5 MG, QD
     Route: 048
     Dates: start: 20151210
  20. GLIMEPIRIDE. [Suspect]
     Active Substance: GLIMEPIRIDE
     Indication: DIABETES MELLITUS
     Dosage: 1 MG, QD
     Route: 048
  21. DOPS [Concomitant]
     Active Substance: DROXIDOPA
     Dosage: 400 MG, UNK
     Dates: start: 20151121
  22. SLOW K [Concomitant]
     Active Substance: POTASSIUM CHLORIDE
     Indication: HYPOKALAEMIA
     Dosage: UNK
     Dates: start: 20151204
  23. ALPROSTADIL ALFADEX [Concomitant]
     Active Substance: ALPROSTADIL ALFADEX
     Indication: SKIN EROSION
     Dosage: UNK
     Dates: start: 20150803
  24. DOPS [Concomitant]
     Active Substance: DROXIDOPA
     Dosage: 300 MG, UNK
     Dates: start: 20151109, end: 20151120
  25. DOPS [Concomitant]
     Active Substance: DROXIDOPA
     Indication: ORTHOSTATIC HYPOTENSION
     Dosage: 100 MG, UNK
     Dates: start: 20150930, end: 20151013
  26. SODIUM PICOSULFATE [Concomitant]
     Active Substance: SODIUM PICOSULFATE
     Indication: CONSTIPATION
     Dosage: UNK
     Dates: start: 20151112, end: 20151118
  27. GEBEN [Concomitant]
     Active Substance: SILVER SULFADIAZINE
     Indication: SKIN ULCER
     Dosage: UNK
     Dates: start: 20151218

REACTIONS (3)
  - Orthostatic hypotension [Recovering/Resolving]
  - Hypoglycaemic encephalopathy [Not Recovered/Not Resolved]
  - Hepatitis acute [Recovered/Resolved]

NARRATIVE: CASE EVENT DATE: 20151106
